FAERS Safety Report 12467270 (Version 3)
Quarter: 2016Q3

REPORT INFORMATION
  Report Type: Report from Study
  Country: US (occurrence: US)
  Receive Date: 20160615
  Receipt Date: 20160909
  Transmission Date: 20161109
  Serious: Yes (Other)
  Sender: FDA-Public Use
  Company Number: US-AMGEN-USASL2016073829

PATIENT
  Age: 37 Year
  Sex: Female

DRUGS (3)
  1. NPLATE [Suspect]
     Active Substance: ROMIPLOSTIM
     Indication: IMMUNE THROMBOCYTOPENIC PURPURA
     Dosage: 75 MUG, QWK
     Route: 065
     Dates: start: 2015
  2. NPLATE [Suspect]
     Active Substance: ROMIPLOSTIM
     Dosage: 144 MUG, UNK
     Route: 065
     Dates: start: 20160201
  3. NPLATE [Suspect]
     Active Substance: ROMIPLOSTIM
     Dosage: 100 MUG, UNK
     Route: 065

REACTIONS (19)
  - Headache [Unknown]
  - Abdominal pain upper [Unknown]
  - Injection site pain [Unknown]
  - Hypoaesthesia [Unknown]
  - Asthenia [Unknown]
  - Heat stroke [Unknown]
  - Neuralgia [Not Recovered/Not Resolved]
  - Pain in extremity [Unknown]
  - Mobility decreased [Unknown]
  - Petechiae [Unknown]
  - Peripheral swelling [Unknown]
  - Paraesthesia [Unknown]
  - Musculoskeletal stiffness [Unknown]
  - Blood disorder [Unknown]
  - Arthralgia [Unknown]
  - Myalgia [Unknown]
  - Grip strength decreased [Unknown]
  - Epistaxis [Unknown]
  - Platelet count abnormal [Unknown]

NARRATIVE: CASE EVENT DATE: 201604
